FAERS Safety Report 5281088-5 (Version None)
Quarter: 2007Q1

REPORT INFORMATION
  Report Type: 
  Country: None (occurrence: None)
  Receive Date: 20061229
  Receipt Date: 20060720
  Transmission Date: 20070707
  Serious: Yes (Other)
  Sender: FDA-Public Use
  Company Number: 2006UW13052

PATIENT
  Age: 43 Year
  Sex: Female
  Weight: 55.7924 kg

DRUGS (4)
  1. CRESTOR [Suspect]
     Indication: HYPERLIPIDAEMIA
     Dates: start: 20060401
  2. NEXIUM ORAL [Concomitant]
  3. BC POWDER [Concomitant]
  4. PREVACID [Concomitant]

REACTIONS (1)
  - ONYCHOCLASIS [None]
